FAERS Safety Report 21858851 (Version 1)
Quarter: 2023Q1

REPORT INFORMATION
  Report Type: Report from Study
  Country: CA (occurrence: CA)
  Receive Date: 20230113
  Receipt Date: 20230113
  Transmission Date: 20230418
  Serious: Yes (Other)
  Sender: FDA-Public Use
  Company Number: CA-TAKEDA-2022TUS055048

PATIENT
  Age: 34 Year
  Sex: Female

DRUGS (5)
  1. HUMAN IMMUNOGLOBULIN G [Suspect]
     Active Substance: HUMAN IMMUNOGLOBULIN G
     Indication: Infertility female
     Dosage: 5 GRAM, 1/WEEK
     Route: 050
     Dates: start: 20220808
  2. HUMAN IMMUNOGLOBULIN G [Suspect]
     Active Substance: HUMAN IMMUNOGLOBULIN G
     Dosage: 5 GRAM, 1/WEEK
     Route: 050
     Dates: start: 20220808
  3. HUMAN IMMUNOGLOBULIN G [Suspect]
     Active Substance: HUMAN IMMUNOGLOBULIN G
     Dosage: 5 GRAM, 1/WEEK
     Route: 050
     Dates: start: 20220808
  4. HUMAN IMMUNOGLOBULIN G [Suspect]
     Active Substance: HUMAN IMMUNOGLOBULIN G
     Dosage: 5 GRAM, 1/WEEK
     Route: 058
     Dates: start: 20220808
  5. SYNTHROID [Concomitant]
     Active Substance: LEVOTHYROXINE SODIUM
     Indication: Infertility
     Dosage: UNK
     Route: 065

REACTIONS (4)
  - Abortion spontaneous [Unknown]
  - Biochemical pregnancy [Not Recovered/Not Resolved]
  - Human chorionic gonadotropin abnormal [Unknown]
  - Off label use [Unknown]

NARRATIVE: CASE EVENT DATE: 20220101
